FAERS Safety Report 7320735-0 (Version None)
Quarter: 2011Q1

REPORT INFORMATION
  Report Type: 
  Country: None (occurrence: None)
  Receive Date: 20110223
  Receipt Date: 20110223
  Transmission Date: 20110831
  Serious: Yes (Other)
  Sender: FDA-Public Use
  Company Number: None

PATIENT
  Sex: Female
  Weight: 74.8435 kg

DRUGS (1)
  1. TERBUTALINE SULFATE [Suspect]
     Indication: PREMATURE LABOUR
     Dosage: 10MG TID PO
     Route: 048
     Dates: start: 20040801, end: 20041001

REACTIONS (6)
  - DRUG EXPOSURE DURING PREGNANCY [None]
  - MATERNAL DRUGS AFFECTING FOETUS [None]
  - RECTOCELE [None]
  - HYPERACUSIS [None]
  - HYPERAESTHESIA [None]
  - CYSTOCELE [None]
